FAERS Safety Report 17707670 (Version 2)
Quarter: 2021Q1

REPORT INFORMATION
  Report Type: Spontaneous
  Country: US (occurrence: US)
  Receive Date: 20200424
  Receipt Date: 20210126
  Transmission Date: 20210419
  Serious: Yes (Death, Other)
  Sender: FDA-Public Use
  Company Number: US-NAPPMUNDI-USA-2020-0151988

PATIENT
  Sex: Male

DRUGS (11)
  1. MORPHINE SULFATE (SIMILAR TO NDA 19?516) [Suspect]
     Active Substance: MORPHINE SULFATE
     Indication: BACK INJURY
     Dosage: UNK
     Route: 065
     Dates: start: 2011
  2. MORPHINE SULFATE EXTENDED?RELEASE TABLETS (RHODES 74?769, 74?862) [Suspect]
     Active Substance: MORPHINE SULFATE
     Indication: PRODUCT USED FOR UNKNOWN INDICATION
     Dosage: UNK
     Route: 048
  3. XANAX [Suspect]
     Active Substance: ALPRAZOLAM
     Indication: INTERVERTEBRAL DISC PROTRUSION
  4. MORPHINE SULFATE (SIMILAR TO NDA 19?516) [Suspect]
     Active Substance: MORPHINE SULFATE
     Indication: INTERVERTEBRAL DISC PROTRUSION
  5. OXYCONTIN [Suspect]
     Active Substance: OXYCODONE HYDROCHLORIDE
     Indication: BACK INJURY
     Dosage: 30 MG, INTIALLY ORAL THEN INJECTED
     Route: 048
     Dates: start: 2011
  6. SOMA [Suspect]
     Active Substance: CARISOPRODOL
     Indication: BACK INJURY
     Dosage: UNK
     Route: 065
     Dates: start: 2011
  7. SOMA [Suspect]
     Active Substance: CARISOPRODOL
     Indication: INTERVERTEBRAL DISC PROTRUSION
  8. HEROIN [Suspect]
     Active Substance: DIAMORPHINE
     Indication: PRODUCT USED FOR UNKNOWN INDICATION
     Dosage: UNK
     Route: 065
  9. OXYCONTIN [Suspect]
     Active Substance: OXYCODONE HYDROCHLORIDE
     Indication: INTERVERTEBRAL DISC PROTRUSION
  10. OXYCODONE HYDROCHLORIDE (SIMILAR TO NDA 22?272) [Suspect]
     Active Substance: OXYCODONE HYDROCHLORIDE
     Indication: PRODUCT USED FOR UNKNOWN INDICATION
     Dosage: UNK
     Route: 065
  11. XANAX [Suspect]
     Active Substance: ALPRAZOLAM
     Indication: BACK INJURY
     Dosage: UNK
     Route: 065
     Dates: start: 2011

REACTIONS (10)
  - Impaired driving ability [Recovered/Resolved]
  - Influenza like illness [Unknown]
  - Pain [Unknown]
  - Drug abuse [Recovered/Resolved]
  - Diarrhoea [Recovered/Resolved]
  - General physical health deterioration [Recovered/Resolved]
  - Drug dependence [Recovered/Resolved]
  - Overdose [Fatal]
  - Personality change [Unknown]
  - Loss of consciousness [Unknown]

NARRATIVE: CASE EVENT DATE: 2011
